FAERS Safety Report 15940885 (Version 1)
Quarter: 2019Q1

REPORT INFORMATION
  Report Type: Spontaneous
  Country: FR (occurrence: FR)
  Receive Date: 20190208
  Receipt Date: 20190208
  Transmission Date: 20190417
  Serious: Yes (Life-Threatening, Other)
  Sender: FDA-Public Use
  Company Number: FR-PFIZER INC-2019057933

PATIENT
  Age: 54 Year
  Sex: Female
  Weight: 110 kg

DRUGS (4)
  1. ROCURONIUM [Suspect]
     Active Substance: ROCURONIUM BROMIDE
     Indication: INDUCTION OF ANAESTHESIA
     Dosage: 40 MG, 1X/DAY
     Route: 041
     Dates: start: 20190107, end: 20190107
  2. PROPOFOL LIPURO [Suspect]
     Active Substance: PROPOFOL
     Indication: INDUCTION OF ANAESTHESIA
     Dosage: 250 MG, 1X/DAY
     Route: 041
     Dates: start: 20190107, end: 20190107
  3. DALACINE [Suspect]
     Active Substance: CLINDAMYCIN
     Indication: ANTIBIOTIC PROPHYLAXIS
     Dosage: 1.2 G, 1X/DAY
     Route: 041
     Dates: start: 20190107, end: 20190107
  4. GENTAMICINE PANPHARMA [Suspect]
     Active Substance: GENTAMICIN
     Indication: ANTIBIOTIC PROPHYLAXIS
     Dosage: 540 MG, 1X/DAY
     Route: 041
     Dates: start: 20190107, end: 20190107

REACTIONS (1)
  - Anaphylactic shock [Recovered/Resolved]

NARRATIVE: CASE EVENT DATE: 20190107
